FAERS Safety Report 16044167 (Version 3)
Quarter: 2019Q2

REPORT INFORMATION
  Report Type: Report from Study
  Country: US (occurrence: US)
  Receive Date: 20190306
  Receipt Date: 20190516
  Transmission Date: 20190711
  Serious: Yes (Hospitalization)
  Sender: FDA-Public Use
  Company Number: US-ACTELION-A-NJ2018-171989

PATIENT
  Age: 64 Year
  Sex: Male
  Weight: 103.86 kg

DRUGS (5)
  1. OPSUMIT [Suspect]
     Active Substance: MACITENTAN
     Indication: PULMONARY HYPERTENSION
     Dosage: 10 MG, QD
     Route: 048
  2. REMODULIN [Concomitant]
     Active Substance: TREPROSTINIL
     Indication: PRODUCT USED FOR UNKNOWN INDICATION
     Dosage: 12.5 NG/KG, PER MIN
     Route: 065
  3. REMODULIN [Concomitant]
     Active Substance: TREPROSTINIL
     Dosage: UNK
     Dates: start: 201809
  4. REMODULIN [Concomitant]
     Active Substance: TREPROSTINIL
     Dosage: 14 NG/KG, PER MIN
  5. ADEMPAS [Concomitant]
     Active Substance: RIOCIGUAT

REACTIONS (27)
  - Haemorrhoids [Unknown]
  - Infusion site discharge [Unknown]
  - Flatulence [Unknown]
  - Nasal congestion [Unknown]
  - Oxygen saturation decreased [Unknown]
  - Urinary incontinence [Unknown]
  - Dysgeusia [Unknown]
  - Paranasal sinus hypersecretion [Unknown]
  - Diarrhoea [Unknown]
  - Asthenia [Unknown]
  - Infusion site haemorrhage [Unknown]
  - Presyncope [Unknown]
  - Abdominal discomfort [Unknown]
  - Infusion site erythema [Unknown]
  - Chills [Unknown]
  - Dry mouth [Unknown]
  - Memory impairment [Unknown]
  - Gastrooesophageal reflux disease [Unknown]
  - Sinus disorder [Unknown]
  - Constipation [Unknown]
  - Dyspnoea exertional [Not Recovered/Not Resolved]
  - Weight increased [Unknown]
  - Headache [Unknown]
  - Vomiting [Unknown]
  - Hypotension [Recovering/Resolving]
  - Infusion site pain [Unknown]
  - Peripheral swelling [Unknown]

NARRATIVE: CASE EVENT DATE: 201809
